FAERS Safety Report 8339302-5 (Version None)
Quarter: 2012Q2

REPORT INFORMATION
  Report Type: 
  Country: None (occurrence: None)
  Receive Date: 20120507
  Receipt Date: 20120425
  Transmission Date: 20120825
  Serious: Yes (Life-Threatening, Hospitalization)
  Sender: FDA-Public Use
  Company Number: CA-JNJFOC-20120413006

PATIENT
  Sex: Female

DRUGS (6)
  1. REMICADE [Suspect]
     Indication: RHEUMATOID ARTHRITIS
     Route: 042
     Dates: start: 20010722, end: 20111007
  2. METHOTREXATE [Concomitant]
     Route: 065
  3. HYDRALAZINE HCL [Concomitant]
     Route: 065
  4. REMICADE [Suspect]
     Indication: UVEITIS
     Route: 042
     Dates: start: 20010722, end: 20111007
  5. INSULIN [Concomitant]
     Route: 065
  6. LYRICA [Concomitant]
     Route: 065

REACTIONS (2)
  - SEPSIS [None]
  - RENAL FAILURE ACUTE [None]
